FAERS Safety Report 23327335 (Version 1)
Quarter: 2023Q4

REPORT INFORMATION
  Report Type: Spontaneous
  Country: US (occurrence: US)
  Receive Date: 20231221
  Receipt Date: 20231221
  Transmission Date: 20240109
  Serious: No
  Sender: FDA-Public Use
  Company Number: US-BAYER-2023A183112

PATIENT
  Age: 72 Year
  Sex: Female

DRUGS (3)
  1. CLARITIN REDITABS [Suspect]
     Active Substance: LORATADINE
     Dosage: 2 DF, QD
     Route: 048
     Dates: start: 20231217, end: 20231220
  2. CLARITIN REDITABS [Suspect]
     Active Substance: LORATADINE
     Dosage: 2 DF, BID
     Route: 048
     Dates: start: 20231220, end: 20231220
  3. METOPROLOL [Suspect]
     Active Substance: METOPROLOL
     Dosage: UNK

REACTIONS (2)
  - Inappropriate schedule of product administration [None]
  - Wrong product administered [None]

NARRATIVE: CASE EVENT DATE: 20231220
